FAERS Safety Report 7785551-4 (Version None)
Quarter: 2011Q3

REPORT INFORMATION
  Report Type: 
  Country: None (occurrence: None)
  Receive Date: 20110929
  Receipt Date: 20110920
  Transmission Date: 20111222
  Serious: Yes (Hospitalization)
  Sender: FDA-Public Use
  Company Number: US-BAYER-2011-024546

PATIENT
  Age: 21 Year
  Sex: Female
  Weight: 58.957 kg

DRUGS (10)
  1. YASMIN [Suspect]
     Indication: CONTRACEPTION
     Dosage: UNK
     Dates: start: 20030101, end: 20110101
  2. YASMIN [Suspect]
     Indication: POLYCYSTIC OVARIES
  3. DROSPIRENONE AND ETHINYL ESTRADIOL [Suspect]
     Indication: CONTRACEPTION
     Dosage: UNK
     Dates: start: 20030101, end: 20110101
  4. ASCORBIC ACID [Concomitant]
     Dosage: UNK UNK, PRN
     Route: 048
     Dates: start: 20000101, end: 20110101
  5. MULTI-VITAMIN [Concomitant]
     Dosage: UNK UNK, QD
     Route: 048
     Dates: start: 20000101, end: 20110101
  6. IBUPROFEN [Concomitant]
     Dosage: UNK UNK, PRN
     Route: 048
  7. TYLENOL-500 [Concomitant]
     Dosage: UNK UNK, PRN
     Route: 048
  8. NSAID'S [Concomitant]
     Dosage: UNK UNK, PRN
     Route: 048
     Dates: start: 20000101, end: 20110101
  9. NAPROSYN [Concomitant]
     Dosage: UNK UNK, PRN
     Route: 048
     Dates: start: 20000101, end: 20110101
  10. DROSPIRENONE AND ETHINYL ESTRADIOL [Suspect]
     Indication: POLYCYSTIC OVARIES

REACTIONS (6)
  - DIARRHOEA [None]
  - MEDICAL DIET [None]
  - THROMBOSIS [None]
  - PROCEDURAL PAIN [None]
  - GASTROINTESTINAL PAIN [None]
  - CHOLECYSTECTOMY [None]
